FAERS Safety Report 7131166-0 (Version None)
Quarter: 2010Q4

REPORT INFORMATION
  Report Type: 
  Country: None (occurrence: None)
  Receive Date: 20101124
  Receipt Date: 20101124
  Transmission Date: 20110411
  Serious: Yes (Other)
  Sender: FDA-Public Use
  Company Number: None

PATIENT
  Age: 87 Year
  Sex: Female
  Weight: 68.0396 kg

DRUGS (6)
  1. LANSOPRAZOLE [Suspect]
     Indication: DYSPEPSIA
     Dosage: 1 TAB 2X A DAY
     Dates: start: 20101108
  2. LANSOPRAZOLE [Suspect]
     Indication: OESOPHAGITIS
     Dosage: 1 TAB 2X A DAY
     Dates: start: 20101108
  3. LANSOPRAZOLE [Suspect]
     Indication: DYSPEPSIA
     Dosage: 1 TAB 2X A DAY
     Dates: start: 20101109
  4. LANSOPRAZOLE [Suspect]
     Indication: OESOPHAGITIS
     Dosage: 1 TAB 2X A DAY
     Dates: start: 20101109
  5. LANSOPRAZOLE [Suspect]
     Indication: DYSPEPSIA
     Dosage: 1 TAB 2X A DAY
     Dates: start: 20101110
  6. LANSOPRAZOLE [Suspect]
     Indication: OESOPHAGITIS
     Dosage: 1 TAB 2X A DAY
     Dates: start: 20101110

REACTIONS (2)
  - COUGH [None]
  - THERAPEUTIC RESPONSE UNEXPECTED WITH DRUG SUBSTITUTION [None]
